FAERS Safety Report 16990692 (Version 1)
Quarter: 2019Q4

REPORT INFORMATION
  Report Type: Spontaneous
  Country: US (occurrence: US)
  Receive Date: 20191104
  Receipt Date: 20191104
  Transmission Date: 20200122
  Serious: Yes (Other)
  Sender: FDA-Public Use
  Company Number: US-PFIZER INC-2019470278

PATIENT
  Age: 79 Year
  Sex: Female

DRUGS (2)
  1. DOXEPIN HCL [Suspect]
     Active Substance: DOXEPIN HYDROCHLORIDE
     Indication: SLEEP DISORDER
     Dosage: UNK
  2. MELATONIN [Interacting]
     Active Substance: MELATONIN
     Indication: SLEEP DISORDER
     Dosage: UNK

REACTIONS (8)
  - Thirst [Unknown]
  - Off label use [Unknown]
  - Disease recurrence [Unknown]
  - Restlessness [Unknown]
  - Insomnia [Unknown]
  - Atrial fibrillation [Unknown]
  - Product use in unapproved indication [Unknown]
  - Drug interaction [Unknown]
